FAERS Safety Report 11595412 (Version 1)
Quarter: 2015Q4

REPORT INFORMATION
  Report Type: Spontaneous
  Country: US (occurrence: None)
  Receive Date: 20151005
  Receipt Date: 20151005
  Transmission Date: 20160304
  Serious: Yes (Death, Life-Threatening, Hospitalization, Disabling)
  Sender: FDA-Public Use
  Company Number: None

PATIENT
  Age: 80 Year
  Sex: Male
  Weight: 77.8 kg

DRUGS (1)
  1. IDELALISIB [Suspect]
     Active Substance: IDELALISIB
     Indication: B-CELL LYMPHOMA
     Route: 048

REACTIONS (8)
  - Pseudomonas test positive [None]
  - Diarrhoea [None]
  - Hypoxia [None]
  - Pneumonia [None]
  - Enterococcal bacteraemia [None]
  - Acute kidney injury [None]
  - Condition aggravated [None]
  - Atrial fibrillation [None]

NARRATIVE: CASE EVENT DATE: 20150403
